FAERS Safety Report 4722204-0 (Version None)
Quarter: 2005Q3

REPORT INFORMATION
  Report Type: 
  Country: None (occurrence: None)
  Receive Date: 20050722
  Receipt Date: 20040830
  Transmission Date: 20060218
  Serious: Yes (Hospitalization)
  Sender: FDA-Public Use
  Company Number: US-GLAXOSMITHKLINE-A0524349A

PATIENT
  Sex: Male

DRUGS (8)
  1. AVANDIA [Suspect]
     Dosage: 4MG PER DAY
     Route: 048
  2. GLIPIZIDE [Concomitant]
  3. ZOCOR [Concomitant]
  4. LOTENSIN [Concomitant]
  5. ATENOLOL [Concomitant]
  6. NORVASC [Concomitant]
  7. ZYRTEC [Concomitant]
  8. FLOMAX [Concomitant]

REACTIONS (1)
  - CARDIAC FAILURE CONGESTIVE [None]
